FAERS Safety Report 12327069 (Version 1)
Quarter: 2016Q2

REPORT INFORMATION
  Report Type: Spontaneous
  Country: US (occurrence: None)
  Receive Date: 20160502
  Receipt Date: 20160502
  Transmission Date: 20160815
  Serious: Yes (Disabling)
  Sender: FDA-Public Use
  Company Number: None

PATIENT
  Age: 58 Year
  Sex: Female
  Weight: 106.6 kg

DRUGS (7)
  1. VERAMIST [Concomitant]
  2. MONTELUKAST SODIUM TABLETS, 10 MG [Suspect]
     Active Substance: MONTELUKAST SODIUM
     Indication: ASTHMA
     Route: 048
  3. ALBUTEROL. [Concomitant]
     Active Substance: ALBUTEROL
  4. FLOVENT [Concomitant]
     Active Substance: FLUTICASONE PROPIONATE
  5. BASIC MULTI - VITAMIN [Concomitant]
  6. SYNTHROID [Concomitant]
     Active Substance: LEVOTHYROXINE SODIUM
  7. VITAMIN D SUPPLEMENTS [Concomitant]

REACTIONS (6)
  - Product substitution issue [None]
  - Dizziness [None]
  - Fatigue [None]
  - Headache [None]
  - Feeling abnormal [None]
  - Asthma [None]

NARRATIVE: CASE EVENT DATE: 20151026
